FAERS Safety Report 19710774 (Version 13)
Quarter: 2022Q2

REPORT INFORMATION
  Report Type: Report from Study
  Country: JP (occurrence: None)
  Receive Date: 20210817
  Receipt Date: 20220407
  Transmission Date: 20220721
  Serious: Yes (Death, Hospitalization)
  Sender: FDA-Public Use
  Company Number: JP-ROCHE-2889970

PATIENT
  Age: 56 Year
  Sex: Male
  Weight: 74.3 kg

DRUGS (23)
  1. TIRAGOLUMAB [Suspect]
     Active Substance: TIRAGOLUMAB
     Indication: Non-small cell lung cancer
     Dosage: ON SAME DAY RECEIVED THE MOST RECENT DOSE OF BLINDED TIRAGOLUMAB PRIOR TO SERIOUS ADVERSE EVENT ONSE
     Route: 042
     Dates: start: 20210730
  2. ATEZOLIZUMAB [Suspect]
     Active Substance: ATEZOLIZUMAB
     Indication: Non-small cell lung cancer
     Dosage: ON SAME DAY, RECEIVED THE MOST RECENT DOSE OF ATEZOLIZUMAB (1200 MG) PRIOR TO SERIOUS ADVERSE EVENT
     Route: 041
     Dates: start: 20210730
  3. EDOXABAN TOSYLATE [Concomitant]
     Active Substance: EDOXABAN TOSYLATE
     Indication: Jugular vein thrombosis
     Route: 048
     Dates: start: 20210730, end: 20210811
  4. EDOXABAN TOSYLATE [Concomitant]
     Active Substance: EDOXABAN TOSYLATE
     Route: 048
     Dates: start: 20210607, end: 20210729
  5. LOXOPROFEN SODIUM DIHYDRATE [Concomitant]
     Active Substance: LOXOPROFEN SODIUM DIHYDRATE
     Indication: Dental caries
     Route: 048
     Dates: start: 20210624
  6. PFIZER-BIONTECH COVID-19 VACCINE [Concomitant]
     Active Substance: TOZINAMERAN
     Route: 030
     Dates: start: 20210727, end: 20210727
  7. SMILE 40EX GOLD MILD [Concomitant]
     Indication: Dry eye
     Route: 061
  8. ROHTO C CUBE [Concomitant]
     Indication: Dry eye
     Route: 061
  9. LEVETIRACETAM [Concomitant]
     Active Substance: LEVETIRACETAM
     Indication: Epilepsy
     Route: 042
     Dates: start: 20210811
  10. FOSPHENYTOIN SODIUM [Concomitant]
     Active Substance: FOSPHENYTOIN SODIUM
     Indication: Epilepsy
     Route: 042
     Dates: start: 20210811
  11. DIAZEPAM [Concomitant]
     Active Substance: DIAZEPAM
     Indication: Epilepsy
     Route: 042
     Dates: start: 20210811
  12. METOCLOPRAMIDE [Concomitant]
     Active Substance: METOCLOPRAMIDE
     Route: 048
     Dates: start: 20210821
  13. BISACODYL [Concomitant]
     Active Substance: BISACODYL
     Indication: Constipation
     Route: 061
     Dates: start: 20210814
  14. LANSOPRAZOLE [Concomitant]
     Active Substance: LANSOPRAZOLE
     Route: 048
     Dates: start: 20210818
  15. UNSPECIFIED INGREDIENT [Concomitant]
     Active Substance: UNSPECIFIED INGREDIENT
     Route: 048
     Dates: start: 20210819
  16. WHITE PETROLATUM [Concomitant]
     Active Substance: PETROLATUM
     Indication: Erythema
     Route: 061
     Dates: start: 20210822
  17. ACETAMINOPHEN [Concomitant]
     Active Substance: ACETAMINOPHEN
     Route: 042
     Dates: start: 20210811
  18. ASCORBIC ACID [Concomitant]
     Active Substance: ASCORBIC ACID
     Route: 042
     Dates: start: 20210812, end: 20210813
  19. CEFEPIME HYDROCHLORIDE [Concomitant]
     Active Substance: CEFEPIME HYDROCHLORIDE
     Route: 042
     Dates: start: 20210812
  20. SULBACTAM SODIUM [Concomitant]
     Active Substance: SULBACTAM SODIUM
     Route: 042
     Dates: start: 20210818
  21. FLURBIPROFEN AXETIL [Concomitant]
     Active Substance: FLURBIPROFEN AXETIL
     Route: 042
     Dates: start: 20210819
  22. ZOLEDRONIC ACID [Concomitant]
     Active Substance: ZOLEDRONIC ACID
     Indication: Non-small cell lung cancer
     Route: 042
     Dates: start: 20210820, end: 20210820
  23. VITAMEDIN (JAPAN) [Concomitant]
     Route: 042
     Dates: start: 20210812, end: 20210813

REACTIONS (1)
  - Thrombophlebitis migrans [Fatal]

NARRATIVE: CASE EVENT DATE: 20210806
